FAERS Safety Report 10199063 (Version 5)
Quarter: 2016Q1

REPORT INFORMATION
  Report Type: Spontaneous
  Country: US (occurrence: US)
  Receive Date: 20140527
  Receipt Date: 20160104
  Transmission Date: 20160525
  Serious: Yes (Hospitalization, Disabling, Other)
  Sender: FDA-Public Use
  Company Number: US-009507513-1405USA011522

PATIENT
  Sex: Female
  Weight: 83.4 kg

DRUGS (9)
  1. FOSAMAX [Suspect]
     Active Substance: ALENDRONATE SODIUM
     Indication: OSTEOPOROSIS
     Dosage: UNK MG, UNK
     Route: 048
     Dates: start: 199811
  2. ALENDRONATE SODIUM. [Suspect]
     Active Substance: ALENDRONATE SODIUM
     Dosage: UNK
  3. NEXIUM [Concomitant]
     Active Substance: ESOMEPRAZOLE MAGNESIUM
     Dosage: UNK
     Dates: start: 2000, end: 2008
  4. MAGNESIUM (UNSPECIFIED) [Concomitant]
     Active Substance: MAGNESIUM
     Dosage: 100 MG, BID
     Route: 048
     Dates: start: 1970
  5. ALENDRONATE SODIUM. [Suspect]
     Active Substance: ALENDRONATE SODIUM
     Indication: OSTEOPOROSIS
     Dosage: 70 MG, QW
     Route: 048
     Dates: start: 20080426, end: 20100201
  6. FOSAMAX [Suspect]
     Active Substance: ALENDRONATE SODIUM
     Indication: OSTEOPENIA
     Dosage: 70 MG, QW
     Route: 048
     Dates: start: 20021226, end: 2008
  7. CALCIUM (UNSPECIFIED) [Concomitant]
     Active Substance: CALCIUM
     Dosage: 1500 MG, UNK
     Route: 048
     Dates: start: 1970
  8. ACIDOPHILUS [Concomitant]
     Active Substance: LACTOBACILLUS ACIDOPHILUS
     Dosage: 8.6 MG, QD
     Route: 048
     Dates: start: 1980
  9. SYNTHROID [Concomitant]
     Active Substance: LEVOTHYROXINE SODIUM
     Indication: HYPOTHYROIDISM
     Dosage: UNK
     Route: 048
     Dates: start: 1989

REACTIONS (26)
  - Cholecystectomy [Unknown]
  - Fractured sacrum [Unknown]
  - Back pain [Not Recovered/Not Resolved]
  - Gastroenteritis [Unknown]
  - Tonsillectomy [Unknown]
  - Mitral valve incompetence [Unknown]
  - Rib fracture [Unknown]
  - Blood cholesterol increased [Unknown]
  - Muscular weakness [Unknown]
  - Osteoporosis [Not Recovered/Not Resolved]
  - Metastatic neoplasm [Unknown]
  - Femur fracture [Not Recovered/Not Resolved]
  - Tooth extraction [Unknown]
  - Restless legs syndrome [Unknown]
  - Spinal osteoarthritis [Unknown]
  - Dental prosthesis placement [Unknown]
  - Tooth extraction [Unknown]
  - Dermal cyst [Unknown]
  - Arthritis [Unknown]
  - Gastrooesophageal reflux disease [Unknown]
  - Femur fracture [Not Recovered/Not Resolved]
  - Periodontal operation [Unknown]
  - Basal cell carcinoma [Unknown]
  - Dental prosthesis user [Unknown]
  - Paraesthesia [Unknown]
  - Rib fracture [Unknown]

NARRATIVE: CASE EVENT DATE: 20030703
